FAERS Safety Report 5263818-1 (Version None)
Quarter: 2007Q1

REPORT INFORMATION
  Report Type: 
  Country: None (occurrence: None)
  Receive Date: 20070313
  Receipt Date: 20070312
  Transmission Date: 20070707
  Serious: Yes (Other)
  Sender: FDA-Public Use
  Company Number: US-GLAXOSMITHKLINE-A0642851A

PATIENT
  Age: 42 Year
  Sex: Male

DRUGS (6)
  1. COREG [Suspect]
     Indication: HYPERTENSION
     Dosage: 25MG TWICE PER DAY
     Route: 048
  2. ACCUPRIL [Concomitant]
  3. NEURONTIN [Concomitant]
  4. GLYBURIDE [Concomitant]
  5. METFORMIN HCL [Concomitant]
  6. LIPITOR [Concomitant]

REACTIONS (3)
  - ADVERSE EVENT [None]
  - ANXIETY [None]
  - ATRIAL FIBRILLATION [None]
